FAERS Safety Report 23493831 (Version 5)
Quarter: 2025Q1

REPORT INFORMATION
  Report Type: Spontaneous
  Country: US (occurrence: US)
  Receive Date: 20240207
  Receipt Date: 20250301
  Transmission Date: 20250408
  Serious: No
  Sender: SANOFI AVENTIS
  Company Number: US-SA-SAC20240131000977

PATIENT
  Age: 74 Year
  Sex: Male

DRUGS (2)
  1. DUPIXENT [Suspect]
     Active Substance: DUPILUMAB
     Indication: Eczema
     Route: 058
     Dates: start: 20231222, end: 20231222
  2. DUPIXENT [Suspect]
     Active Substance: DUPILUMAB
     Indication: Neurodermatitis
     Dosage: 300 MG, QOW
     Route: 058
     Dates: start: 20240106

REACTIONS (5)
  - Eczema [Recovering/Resolving]
  - Epistaxis [Recovered/Resolved]
  - Vision blurred [Unknown]
  - Dermatitis atopic [Recovered/Resolved]
  - Neurodermatitis [Unknown]

NARRATIVE: CASE EVENT DATE: 20240101
